FAERS Safety Report 15537309 (Version 1)
Quarter: 2018Q4

REPORT INFORMATION
  Report Type: Spontaneous
  Country: IN (occurrence: IN)
  Receive Date: 20181022
  Receipt Date: 20181022
  Transmission Date: 20190205
  Serious: Yes (Other)
  Sender: FDA-Public Use
  Company Number: IN-PFIZER INC-2018427070

PATIENT
  Age: 79 Year
  Sex: Female

DRUGS (2)
  1. LETROZOLE. [Concomitant]
     Active Substance: LETROZOLE
     Indication: BREAST CANCER METASTATIC
     Dosage: UNK
     Dates: start: 201712
  2. PALBACE [Suspect]
     Active Substance: PALBOCICLIB
     Indication: BREAST CANCER METASTATIC
     Dosage: 125 MG, UNK
     Route: 048
     Dates: start: 201712

REACTIONS (7)
  - Autoimmune thyroiditis [Unknown]
  - Exostosis [Unknown]
  - Bone disorder [Unknown]
  - Accessory spleen [Unknown]
  - Osteoarthritis [Unknown]
  - Renal cyst [Unknown]
  - Hepatomegaly [Unknown]
